FAERS Safety Report 24392002 (Version 1)
Quarter: 2024Q4

REPORT INFORMATION
  Report Type: Report from Study
  Country: US (occurrence: US)
  Receive Date: 20241003
  Receipt Date: 20241003
  Transmission Date: 20250114
  Serious: Yes (Hospitalization)
  Sender: SANDOZ
  Company Number: US-SANDOZ-SDZ2024US084096

PATIENT
  Age: 39 Year
  Sex: Female

DRUGS (1)
  1. ZARXIO [Suspect]
     Active Substance: FILGRASTIM-SNDZ
     Indication: Product used for unknown indication
     Dosage: 300 UG, QD
     Route: 058
     Dates: start: 20240710

REACTIONS (2)
  - Eye movement disorder [Not Recovered/Not Resolved]
  - Dyskinesia [Not Recovered/Not Resolved]

NARRATIVE: CASE EVENT DATE: 20240926
